FAERS Safety Report 6195210-X (Version None)
Quarter: 2009Q2

REPORT INFORMATION
  Report Type: 
  Country: None (occurrence: None)
  Receive Date: 20090519
  Receipt Date: 20090505
  Transmission Date: 20091009
  Serious: Yes (Hospitalization)
  Sender: FDA-Public Use
  Company Number: US-MERCK-0905USA00641

PATIENT
  Age: 30 Year
  Sex: Female

DRUGS (12)
  1. SUSTIVA [Suspect]
     Indication: ANTIRETROVIRAL THERAPY
     Route: 048
     Dates: start: 20080901
  2. EMTRICITABINE [Suspect]
     Indication: ANTIRETROVIRAL THERAPY
     Route: 048
     Dates: start: 20080901
  3. TENOFOVIR [Suspect]
     Indication: ANTIRETROVIRAL THERAPY
     Route: 048
     Dates: start: 20080901
  4. DECADRON [Suspect]
     Route: 048
     Dates: start: 20080901
  5. SULFAMETHOXAZOLE AND TRIMETHOPRIM [Concomitant]
     Route: 041
     Dates: start: 20080901
  6. PREDNISONE [Concomitant]
     Route: 048
     Dates: start: 20080901
  7. PREDNISONE [Concomitant]
     Route: 048
     Dates: start: 20080901
  8. PREDNISONE [Concomitant]
     Route: 048
     Dates: start: 20080901
  9. PREDNISONE [Concomitant]
     Route: 048
     Dates: start: 20080901
  10. FLUCONAZOLE [Concomitant]
     Route: 048
  11. SULFAMETHOXAZOLE AND TRIMETHOPRIM [Concomitant]
     Route: 048
     Dates: start: 20080901
  12. AZITHROMYCIN [Concomitant]
     Route: 048
     Dates: start: 20080901

REACTIONS (2)
  - IMMUNE RECONSTITUTION SYNDROME [None]
  - TOXOPLASMOSIS [None]
